FAERS Safety Report 6024158-6 (Version None)
Quarter: 2008Q4

REPORT INFORMATION
  Report Type: 
  Country: None (occurrence: None)
  Receive Date: 20081230
  Receipt Date: 20081218
  Transmission Date: 20090506
  Serious: Yes (Hospitalization)
  Sender: FDA-Public Use
  Company Number: KR-PFIZER INC-2006059505

PATIENT

DRUGS (4)
  1. ZIPRASIDONE HCL [Suspect]
     Indication: SCHIZOPHRENIA, PARANOID TYPE
     Route: 048
     Dates: start: 20060112, end: 20060128
  2. GABAPENTIN [Concomitant]
     Indication: HEADACHE
     Dosage: 300 MG
     Route: 048
     Dates: start: 20060112, end: 20060126
  3. NORTRIPTYLINE HCL [Concomitant]
     Route: 048
     Dates: start: 20060112, end: 20060316
  4. HALOPERIDOL [Concomitant]
     Route: 048
     Dates: start: 20060112, end: 20060205

REACTIONS (3)
  - CHEST INJURY [None]
  - PSYCHOTIC DISORDER [None]
  - SUICIDE ATTEMPT [None]
